FAERS Safety Report 5533468-8 (Version None)
Quarter: 2007Q4

REPORT INFORMATION
  Report Type: 
  Country: None (occurrence: None)
  Receive Date: 20071204
  Receipt Date: 20071126
  Transmission Date: 20080405
  Serious: Yes (Hospitalization, Disabling)
  Sender: FDA-Public Use
  Company Number: US-ELI_LILLY_AND_COMPANY-US200711000392

PATIENT
  Sex: Female

DRUGS (13)
  1. FORTEO [Suspect]
     Indication: OSTEOPOROSIS
     Dosage: 20 UG, DAILY (1/D)
     Dates: start: 20060101
  2. LANTUS [Concomitant]
     Dosage: 15 UNITS, EACH EVENING
  3. CALCIUM [Concomitant]
  4. INSULIN [Concomitant]
     Dosage: UNK, SLIDING SCALE
  5. VALIUM [Concomitant]
     Dosage: UNK, 2 QHS
  6. ASPIRIN [Concomitant]
     Dosage: UNK, DAILY (1/D)
  7. SYNTHROID [Concomitant]
     Dosage: 150 UNK, DAILY (1/D)
  8. ULTRAM [Concomitant]
     Dosage: UNK, EVERY 8 HRS
  9. METOPROLOL [Concomitant]
     Dosage: 25 UNK, 2/D
  10. ALBUTEROL [Concomitant]
     Dosage: UNK, AS NEEDED
  11. ATROVENT [Concomitant]
     Dosage: UNK, AS NEEDED
  12. OMEPRAZOLE [Concomitant]
     Dosage: UNK, DAILY (1/D)
  13. SODIUM BICARBONATE [Concomitant]
     Dosage: UNK, DAILY (1/D)

REACTIONS (13)
  - BLOOD CREATININE INCREASED [None]
  - DIABETES MELLITUS INADEQUATE CONTROL [None]
  - ENCEPHALOPATHY [None]
  - FALL [None]
  - GASTRIC ULCER [None]
  - HAEMATOCRIT DECREASED [None]
  - IMPAIRED WORK ABILITY [None]
  - NUTRITIONAL CONDITION ABNORMAL [None]
  - OESOPHAGEAL DISORDER [None]
  - PNEUMONIA ASPIRATION [None]
  - SKIN DISORDER [None]
  - SPINAL COMPRESSION FRACTURE [None]
  - URINARY TRACT INFECTION [None]
